FAERS Safety Report 10042148 (Version 3)
Quarter: 2017Q4

REPORT INFORMATION
  Report Type: Report from Study
  Country: US (occurrence: US)
  Receive Date: 20140327
  Receipt Date: 20171013
  Transmission Date: 20180320
  Serious: Yes (Other)
  Sender: FDA-Public Use
  Company Number: US-SA-2013SA118905

PATIENT
  Age: 50 Year
  Sex: Female
  Weight: 153 kg

DRUGS (9)
  1. AUBAGIO [Suspect]
     Active Substance: TERIFLUNOMIDE
     Indication: MULTIPLE SCLEROSIS
     Dosage: HAS BEEN ON IT FOR 4 WEEKS
     Route: 048
     Dates: start: 20131007
  2. GABAPENTIN. [Concomitant]
     Active Substance: GABAPENTIN
     Indication: NEURITIS
  3. AUBAGIO [Suspect]
     Active Substance: TERIFLUNOMIDE
     Indication: MULTIPLE SCLEROSIS
     Dosage: HAS BEEN ON IT FOR 4 WEEKS
     Route: 048
     Dates: start: 20140203, end: 20140223
  4. IBUPROFEN. [Concomitant]
     Active Substance: IBUPROFEN
     Indication: INFLAMMATORY PAIN
  5. DETROL [Concomitant]
     Active Substance: TOLTERODINE TARTRATE
     Indication: URINARY INCONTINENCE
  6. PANTOPRAZOLE [Concomitant]
     Active Substance: PANTOPRAZOLE
     Indication: HYPERCHLORHYDRIA
  7. OMEPRAZOLE. [Concomitant]
     Active Substance: OMEPRAZOLE
     Indication: HYPERCHLORHYDRIA
  8. DONEPEZIL. [Concomitant]
     Active Substance: DONEPEZIL
     Indication: HYPERCHLORHYDRIA
  9. PANTHENOL/RETINOL/THIAMINE HYDROCHLORIDE/ASCORBIC ACID/ERGOCALCIFEROL/FOLIC ACID/RIBOFLAVIN/NICOTINA [Concomitant]
     Indication: ROUTINE HEALTH MAINTENANCE

REACTIONS (17)
  - Amnesia [Unknown]
  - Fall [Unknown]
  - Dizziness [Not Recovered/Not Resolved]
  - Depression [Recovering/Resolving]
  - Head discomfort [Recovering/Resolving]
  - Sensory loss [Unknown]
  - Visual impairment [Recovering/Resolving]
  - Musculoskeletal pain [Unknown]
  - Suicidal ideation [Unknown]
  - Tremor [Unknown]
  - Depression [Recovering/Resolving]
  - Anxiety [Recovering/Resolving]
  - Disorientation [Recovering/Resolving]
  - Groin pain [Unknown]
  - Gait disturbance [Recovering/Resolving]
  - Paraesthesia [Not Recovered/Not Resolved]
  - Contusion [Unknown]

NARRATIVE: CASE EVENT DATE: 20131116
